FAERS Safety Report 8806733 (Version 2)
Quarter: 2012Q4

REPORT INFORMATION
  Report Type: Spontaneous
  Country: None (occurrence: None)
  Receive Date: 20120919
  Receipt Date: 20120921
  Transmission Date: 20130627
  Serious: Yes (Disabling)
  Sender: FDA-Public Use
  Company Number: AUR-APL-2012-03965

PATIENT
  Age: 23 Year
  Sex: Female

DRUGS (3)
  1. CITALOPRAM (CITALOPRAM) [Suspect]
     Indication: DEPRESSION
     Route: 048
     Dates: start: 20110706
  2. METFORMIN (METFORMIN) [Suspect]
     Indication: POLYCYSTIC OVARIAN SYNDROME
     Route: 048
     Dates: start: 20120825
  3. COLECALCIFEROL [Suspect]
     Indication: DRUG USE FOR UNKNOWN INDICATION
     Dosage: (10000 iu,1 in 1 wk)
     Dates: start: 20120828

REACTIONS (1)
  - Sinus headache [None]
